FAERS Safety Report 6712888-X (Version None)
Quarter: 2010Q2

REPORT INFORMATION
  Report Type: 
  Country: None (occurrence: None)
  Receive Date: 20100505
  Receipt Date: 20100505
  Transmission Date: 20101027
  Serious: Yes (Other)
  Sender: FDA-Public Use
  Company Number: None

PATIENT
  Age: 71 Year
  Sex: Female
  Weight: 73.4827 kg

DRUGS (1)
  1. TYLENOL EXTRA STRENGTH JOHNSON + JOHNSON [Suspect]
     Indication: HEADACHE
     Dosage: 2 CAPLETS EVERY 4 HOURS PO
     Route: 048
     Dates: start: 20100123, end: 20100124

REACTIONS (2)
  - ABDOMINAL PAIN UPPER [None]
  - DIARRHOEA [None]
